FAERS Safety Report 7516887 (Version 5)
Quarter: 2014Q2

REPORT INFORMATION
  Report Type: Spontaneous
  Country: US (occurrence: US)
  Receive Date: 20100731
  Receipt Date: 20140530
  Transmission Date: 20141212
  Serious: Yes (Disabling, Other)
  Sender: FDA-Public Use
  Company Number: US-PFIZER INC-2004033239

PATIENT
  Age: 62 Year
  Sex: Male
  Weight: 62.59 kg

DRUGS (15)
  1. NEURONTIN [Suspect]
     Indication: NERVE INJURY
     Dosage: 3600 MG, DAILY
     Route: 048
     Dates: start: 1996
  2. NEURONTIN [Suspect]
     Indication: NEUROPATHY PERIPHERAL
     Dosage: 800 MG, 4X/DAY
     Route: 048
     Dates: start: 1999
  3. NEURONTIN [Suspect]
     Indication: POST HERPETIC NEURALGIA
  4. NEURONTIN [Suspect]
     Indication: NEURALGIA
  5. LIPITOR [Suspect]
     Indication: BLOOD CHOLESTEROL INCREASED
     Dosage: 20 MG, 1X/DAY
     Route: 048
     Dates: start: 1999
  6. VIAGRA [Suspect]
     Indication: ERECTILE DYSFUNCTION
     Dosage: 100 MG, AS NEEDED
     Route: 048
     Dates: start: 1999
  7. TRAMADOL HYDROCHLORIDE [Suspect]
     Indication: NEURALGIA
     Dosage: UNK, 4X/DAY
  8. TRAMADOL HYDROCHLORIDE [Suspect]
     Dosage: 50 MG, EVERY 4 HRS
  9. METHOCARBAMOL [Suspect]
     Indication: MUSCLE RELAXANT THERAPY
     Dosage: UNK
     Route: 065
  10. DURAGESIC [Concomitant]
     Indication: PAIN
     Dosage: UNK (75 MCG/HR, APPLY 1 PATCH AS DIRECTED EVERY 75 HOURS. REMOVE PREVIOUS PATCH)
  11. LIDOCAINE [Concomitant]
     Dosage: 700 MG, DAILY (APPLY 1 PATCH AS DIRECTED ONCE DAILY. APPLY TOPICALLY 12HOURS ON/12 HOURS OFF)
     Route: 061
  12. CALTRATE [Concomitant]
     Dosage: 1 DF, DAILY  (600 MG (1500 MG) TAKE ONE TABLET DAILY)
  13. CHONDROITIN AND GLUCOSAMINE-MV-MIN3 [Concomitant]
     Dosage: 1 DF, 1X/DAY (TAKE 1 TABLET BY MOUTH ONCE DAILY)
     Route: 048
  14. IRON [Concomitant]
     Dosage: 1 DF, 2X/DAY  (325 (65) MG ORAL TAB, TAKE 1 TAB TWICW A DAY)
     Route: 048
  15. ASPIRIN [Concomitant]
     Dosage: 81 MG, DAILY (TAKE ONE TABLET DAILY)
     Route: 048

REACTIONS (17)
  - Pain [Not Recovered/Not Resolved]
  - Abasia [Not Recovered/Not Resolved]
  - Fall [Recovered/Resolved]
  - Drug dependence [Unknown]
  - Schizoaffective disorder [Unknown]
  - Autonomic neuropathy [Unknown]
  - Schizophrenia [Unknown]
  - Feeling drunk [Recovered/Resolved]
  - Drug ineffective [Unknown]
  - Neck pain [Unknown]
  - Back disorder [Unknown]
  - Chondropathy [Unknown]
  - Bone disorder [Unknown]
  - Gait disturbance [Unknown]
  - Back pain [Unknown]
  - Arthralgia [Unknown]
  - Pain in extremity [Unknown]
